FAERS Safety Report 8473285-2 (Version None)
Quarter: 2012Q2

REPORT INFORMATION
  Report Type: 
  Country: None (occurrence: None)
  Receive Date: 20120627
  Receipt Date: 20120621
  Transmission Date: 20120825
  Serious: Yes (Hospitalization)
  Sender: FDA-Public Use
  Company Number: US-AMGEN-USASP2012033965

PATIENT
  Age: 85 Year
  Sex: Female
  Weight: 46.259 kg

DRUGS (1)
  1. PROLIA [Suspect]
     Indication: OSTEOPOROSIS POSTMENOPAUSAL
     Dosage: 60 MG, Q6MO
     Dates: start: 20120419

REACTIONS (6)
  - MOBILITY DECREASED [None]
  - RASH MACULAR [None]
  - EMOTIONAL DISTRESS [None]
  - HEADACHE [None]
  - URTICARIA [None]
  - MYALGIA [None]
